FAERS Safety Report 14154207 (Version 3)
Quarter: 2018Q1

REPORT INFORMATION
  Report Type: Report from Study
  Country: FI (occurrence: FI)
  Receive Date: 20171102
  Receipt Date: 20180215
  Transmission Date: 20180508
  Serious: Yes (Death, Life-Threatening, Hospitalization)
  Sender: FDA-Public Use
  Company Number: US-ASTRAZENECA-2017SF04770

PATIENT
  Age: 59 Year
  Sex: Male
  Weight: 63.1 kg

DRUGS (36)
  1. CC-5013 [Suspect]
     Active Substance: LENALIDOMIDE
     Indication: PLASMA CELL MYELOMA
     Route: 048
     Dates: start: 20170905, end: 20170906
  2. LYRICA [Concomitant]
     Active Substance: PREGABALIN
     Indication: BONE PAIN
     Route: 048
     Dates: start: 20170306
  3. CALCICHEW D3 FORTE LEMON [Concomitant]
     Indication: MINERAL SUPPLEMENTATION
     Route: 048
     Dates: start: 20160526
  4. LORAZEPAM. [Concomitant]
     Active Substance: LORAZEPAM
     Indication: ANXIETY
     Dosage: MAX. 3 MG/DAY
     Route: 048
     Dates: start: 20160905
  5. ERTAPENEM. [Concomitant]
     Active Substance: ERTAPENEM SODIUM
     Indication: PYREXIA
     Route: 065
     Dates: start: 20171009, end: 20171010
  6. ACICLOVIR [Concomitant]
     Active Substance: ACYCLOVIR
     Indication: INFECTION PROPHYLAXIS
     Route: 065
     Dates: start: 20171013, end: 20171016
  7. MEDI4736 [Suspect]
     Active Substance: DURVALUMAB
     Indication: PLASMA CELL MYELOMA
     Route: 041
     Dates: start: 20170905, end: 20170905
  8. CC-5013 [Suspect]
     Active Substance: LENALIDOMIDE
     Indication: PLASMA CELL MYELOMA
     Route: 048
     Dates: start: 20170206, end: 20170226
  9. OXYNORM [Concomitant]
     Active Substance: OXYCODONE HYDROCHLORIDE
     Indication: PRODUCT USED FOR UNKNOWN INDICATION
     Dosage: (MAX. 120 MG/DAY)
     Route: 048
     Dates: start: 20161128
  10. ASA [Concomitant]
     Active Substance: ASPIRIN
     Indication: PROPHYLAXIS
     Route: 065
     Dates: start: 20170503, end: 20170913
  11. COTRIM FORTE [Concomitant]
     Active Substance: SULFAMETHOXAZOLE\TRIMETHOPRIM
     Indication: INFECTION PROPHYLAXIS
     Dosage: 160/80 MG
     Route: 065
     Dates: start: 20161013, end: 20161016
  12. ALLOPURINOL. [Concomitant]
     Active Substance: ALLOPURINOL
     Indication: PRODUCT USED FOR UNKNOWN INDICATION
     Route: 048
  13. MEDI4736 [Suspect]
     Active Substance: DURVALUMAB
     Indication: PLASMA CELL MYELOMA
     Route: 041
     Dates: start: 20170206, end: 20170206
  14. PANADOL FORTE [Concomitant]
     Active Substance: ACETAMINOPHEN\CAFFEINE
     Indication: PAIN IN EXTREMITY
     Route: 048
     Dates: start: 20161114
  15. PANADOL FORTE [Concomitant]
     Active Substance: ACETAMINOPHEN\CAFFEINE
     Indication: PAIN
     Route: 048
     Dates: start: 20161114
  16. CEFALEXIN [Concomitant]
     Active Substance: CEPHALEXIN
     Indication: PYREXIA
     Route: 065
     Dates: start: 20171018, end: 20171022
  17. BETOLVEX [Concomitant]
     Active Substance: CYANOCOBALAMIN
     Indication: SUPPLEMENTATION THERAPY
     Route: 048
     Dates: start: 20170403
  18. IMOVANE [Concomitant]
     Active Substance: ZOPICLONE
     Indication: PRODUCT USED FOR UNKNOWN INDICATION
     Dosage: (MAX. 7.5. MG/DAY)
     Route: 048
  19. PANADOL FORTE [Concomitant]
     Active Substance: ACETAMINOPHEN\CAFFEINE
     Indication: PAIN
     Route: 048
     Dates: start: 20160607
  20. CALCICHEW D3 FORTE LEMON [Concomitant]
     Indication: VITAMIN SUPPLEMENTATION
     Route: 048
     Dates: start: 20160526
  21. EMGESAN [Concomitant]
     Indication: HYPOMAGNESAEMIA
     Route: 048
     Dates: start: 20161128
  22. SILDENAFIL. [Concomitant]
     Active Substance: SILDENAFIL
     Indication: PRODUCT USED FOR UNKNOWN INDICATION
     Dosage: 1 TABLET (MAX. 2 TABLETS/DAY)
     Route: 048
  23. MATRIFEN [Concomitant]
     Active Substance: FENTANYL
     Indication: PRODUCT USED FOR UNKNOWN INDICATION
     Route: 062
  24. PANADOL FORTE [Concomitant]
     Active Substance: ACETAMINOPHEN\CAFFEINE
     Indication: PAIN IN EXTREMITY
     Route: 048
     Dates: start: 20160607
  25. SOMAC [Concomitant]
     Active Substance: PANTOPRAZOLE SODIUM
     Indication: DYSPEPSIA
     Route: 048
     Dates: start: 20160526
  26. LEVOLAC [Concomitant]
     Active Substance: LACTULOSE
     Indication: CONSTIPATION
     Dosage: 670 MG/ML
     Route: 048
     Dates: start: 20160627
  27. ONDANSETRON [Concomitant]
     Active Substance: ONDANSETRON
     Indication: NAUSEA
     Dosage: (MAX. 16 MG/DAY)
     Route: 048
  28. FENTANYL CITRATE. [Concomitant]
     Active Substance: FENTANYL CITRATE
     Indication: PAIN IN EXTREMITY
     Dosage: 112.5 UG/H
     Route: 065
     Dates: start: 20170421
  29. ZOMETA [Concomitant]
     Active Substance: ZOLEDRONIC ACID
     Indication: PROPHYLAXIS
     Route: 041
     Dates: start: 20170729
  30. DOXYCYCLINE. [Concomitant]
     Active Substance: DOXYCYCLINE
     Indication: PYREXIA
     Route: 065
     Dates: start: 20170927, end: 20171003
  31. ZOPICLONE [Concomitant]
     Active Substance: ZOPICLONE
     Indication: PROPHYLAXIS
     Dosage: 7.5 MG
     Route: 065
     Dates: start: 20160905
  32. MYKUNDEX [Concomitant]
     Indication: OROPHARYNGEAL CANDIDIASIS
     Route: 065
     Dates: start: 20170917, end: 20171010
  33. DIAPAM [Concomitant]
     Active Substance: DIAZEPAM
     Indication: PRODUCT USED FOR UNKNOWN INDICATION
     Route: 048
  34. MELATONIN [Concomitant]
     Active Substance: MELATONIN
     Indication: INSOMNIA
     Route: 048
     Dates: start: 20160816
  35. MACROGOL 4000 [Concomitant]
     Active Substance: POLYETHYLENE GLYCOL 4000
     Indication: CONSTIPATION
     Dosage: 1?2 DOSE BAGS (MAX. 3 DOSE BAGS/DAY)
     Route: 048
     Dates: start: 20161128
  36. COTRIM FORTE [Concomitant]
     Active Substance: SULFAMETHOXAZOLE\TRIMETHOPRIM
     Indication: INFECTION PROPHYLAXIS
     Dosage: 160/80 MG
     Route: 065
     Dates: start: 20161010, end: 20170915

REACTIONS (2)
  - Cytokine release syndrome [Fatal]
  - Pyrexia [Recovered/Resolved]

NARRATIVE: CASE EVENT DATE: 20171004
